FAERS Safety Report 9647769 (Version 2)
Quarter: 2013Q4

REPORT INFORMATION
  Report Type: Spontaneous
  Country: IT (occurrence: IT)
  Receive Date: 20131028
  Receipt Date: 20131114
  Transmission Date: 20140711
  Serious: Yes (Other)
  Sender: FDA-Public Use
  Company Number: IT-JNJFOC-20131013156

PATIENT
  Age: 12 Month
  Sex: Female
  Weight: 13 kg

DRUGS (1)
  1. DUROGESIC [Suspect]
     Indication: ACCIDENTAL EXPOSURE TO PRODUCT BY CHILD
     Route: 003
     Dates: start: 20131019, end: 20131019

REACTIONS (2)
  - Accidental exposure to product by child [Unknown]
  - Ataxia [Unknown]
